FAERS Safety Report 6247816-7 (Version None)
Quarter: 2009Q2

REPORT INFORMATION
  Report Type: 
  Country: None (occurrence: None)
  Receive Date: 20090626
  Receipt Date: 20090623
  Transmission Date: 20091009
  Serious: Yes (Other)
  Sender: FDA-Public Use
  Company Number: US-BAYER-200924447NA

PATIENT
  Age: 59 Year
  Sex: Male

DRUGS (5)
  1. LEVITRA [Suspect]
     Indication: ERECTILE DYSFUNCTION
     Dosage: 1 - 2 PER MONTH
     Route: 048
     Dates: start: 20080101
  2. CARVEDILOL [Concomitant]
  3. PANTOPRAZOLE SODIUM [Concomitant]
  4. BENAZEPRIL HYDROCHLORIDE [Concomitant]
  5. PLAVIX [Concomitant]

REACTIONS (3)
  - PHOTOPHOBIA [None]
  - VISION BLURRED [None]
  - VISUAL IMPAIRMENT [None]
